FAERS Safety Report 23387544 (Version 1)
Quarter: 2024Q1

REPORT INFORMATION
  Report Type: Spontaneous
  Country: KR (occurrence: KR)
  Receive Date: 20240110
  Receipt Date: 20240110
  Transmission Date: 20240410
  Serious: Yes (Death)
  Sender: FDA-Public Use
  Company Number: KR-ELI_LILLY_AND_COMPANY-KR202401003519

PATIENT
  Age: 49 Year
  Sex: Male

DRUGS (51)
  1. CYRAMZA [Suspect]
     Active Substance: RAMUCIRUMAB
     Indication: Hepatic cancer
     Dosage: 500 MG, UNKNOWN
     Route: 042
     Dates: start: 20201222
  2. CYRAMZA [Suspect]
     Active Substance: RAMUCIRUMAB
     Dosage: 500 MG, UNKNOWN
     Route: 042
     Dates: start: 20210118
  3. DAIHAN ISOTONIC SODIUM CHLORIDE [Concomitant]
     Indication: Product used for unknown indication
     Dosage: UNK, SINGLE
     Dates: start: 20201222
  4. DAIHAN ISOTONIC SODIUM CHLORIDE [Concomitant]
     Dosage: UNK, SINGLE
     Dates: start: 20210118
  5. CHOONGWAE SODIUM CHLORIDE [Concomitant]
     Indication: Product used for unknown indication
     Dosage: UNK, SINGLE
     Dates: start: 20201222
  6. CHOONGWAE SODIUM CHLORIDE [Concomitant]
     Dosage: UNK, OTHER (8 TIMES FOR 1 DAY)
     Dates: start: 20201222
  7. CHOONGWAE SODIUM CHLORIDE [Concomitant]
     Dosage: UNK, SINGLE
     Dates: start: 20210118
  8. CHOONGWAE SODIUM CHLORIDE [Concomitant]
     Dosage: UNK, OTHER (2 TIMES FOR 1 DAY)
     Dates: start: 20210118
  9. GASTER [Concomitant]
     Active Substance: FAMOTIDINE
     Indication: Product used for unknown indication
     Dosage: UNK, SINGLE
     Dates: start: 20201222
  10. GASTER [Concomitant]
     Active Substance: FAMOTIDINE
     Dosage: UNK, SINGLE
     Dates: start: 20210118
  11. BC MORPHINE SULFATE [Concomitant]
     Indication: Product used for unknown indication
     Dosage: 10 MG, OTHER (2 TIMES FOR 8 DAYS)
     Dates: start: 20201222
  12. BC MORPHINE SULFATE [Concomitant]
     Dosage: 10 MG (2 TIMES FOR 6 DAYS)
     Dates: start: 20210118
  13. BC MORPHINE SULFATE [Concomitant]
     Dosage: 30 MG (2 TIMES FOR 1 DAY)
     Dates: start: 20210118
  14. PENIRAMIN [Concomitant]
     Indication: Product used for unknown indication
     Dosage: UNK, SINGLE
     Dates: start: 20201222
  15. PENIRAMIN [Concomitant]
     Dosage: UNK, SINGLE
     Dates: start: 20210118
  16. AMITRIPTYLINE HYDROCHLORIDE [Concomitant]
     Active Substance: AMITRIPTYLINE HYDROCHLORIDE
     Indication: Product used for unknown indication
     Dosage: UNK
     Dates: start: 20201222
  17. CALCIUM CARBONATE\CHOLECALCIFEROL [Concomitant]
     Active Substance: CALCIUM CARBONATE\CHOLECALCIFEROL
     Indication: Product used for unknown indication
     Dosage: UNK, SINGLE
     Dates: start: 20201222
  18. CALCIUM CARBONATE\CHOLECALCIFEROL [Concomitant]
     Active Substance: CALCIUM CARBONATE\CHOLECALCIFEROL
     Dosage: UNK, SINGLE
     Dates: start: 20210118
  19. CARBAMAZEPINE [Concomitant]
     Active Substance: CARBAMAZEPINE
     Indication: Product used for unknown indication
     Dosage: UNK, SINGLE
     Dates: start: 20201222
  20. ATACAND [Concomitant]
     Active Substance: CANDESARTAN CILEXETIL
     Indication: Product used for unknown indication
     Dosage: UNK, SINGLE
     Dates: start: 20201222
  21. ATACAND [Concomitant]
     Active Substance: CANDESARTAN CILEXETIL
     Dosage: UNK, SINGLE
     Dates: start: 20210118
  22. BC CODEINE PHOSPHATE [Concomitant]
     Indication: Product used for unknown indication
     Dosage: 4 TIMES IN 1 DAY
     Dates: start: 20210118
  23. YUHAN DEXAMETHASONE [Concomitant]
     Indication: Product used for unknown indication
     Dosage: UNK 6 TIMES FOR 1 DAY
     Dates: start: 20201222
  24. YUHAN DEXAMETHASONE [Concomitant]
     Dosage: UNK  6 TIMES FOR 1 DAY
     Dates: start: 20210118
  25. SINIL FOLIC ACID [Concomitant]
     Indication: Product used for unknown indication
     Dosage: UNK, SINGLE
     Dates: start: 20201222
  26. SINIL FOLIC ACID [Concomitant]
     Dosage: UNK, SINGLE
     Dates: start: 20210118
  27. HARNAL [Concomitant]
     Active Substance: TAMSULOSIN HYDROCHLORIDE
     Indication: Product used for unknown indication
     Dosage: UNK, SINGLE
     Dates: start: 20210118
  28. MACPERAN [METOCLOPRAMIDE] [Concomitant]
     Indication: Product used for unknown indication
     Dosage: UNK 3 TIMES FOR 1 DAY
     Dates: start: 20201222
  29. MACPERAN [METOCLOPRAMIDE] [Concomitant]
     Dosage: UNK 3 TIMES FOR 1 DAY
     Dates: start: 20210118
  30. MAGNESIUM HYDROXIDE [Concomitant]
     Active Substance: MAGNESIUM HYDROXIDE
     Indication: Product used for unknown indication
     Dosage: UNK (3 TIMES FOR 1 DAY)
     Dates: start: 20201222
  31. MAGNESIUM HYDROXIDE [Concomitant]
     Active Substance: MAGNESIUM HYDROXIDE
     Dosage: UNK (3 TIMES FOR 1 DAY)
     Dates: start: 20210118
  32. ANYDIPINE [Concomitant]
     Indication: Product used for unknown indication
     Dosage: UNK, SINGLE
     Dates: start: 20201222
  33. ANYDIPINE [Concomitant]
     Dosage: UNK, SINGLE
     Dates: start: 20210118
  34. LYRICA [Concomitant]
     Active Substance: PREGABALIN
     Indication: Product used for unknown indication
     Dosage: 75 MG (2 TIMES FOR 1 DAY)
     Dates: start: 20201222
  35. PANTEON [Concomitant]
     Indication: Product used for unknown indication
     Dosage: 2 TIME FOR 1 DAY
     Dates: start: 20201222
  36. PANTEON [Concomitant]
     Dosage: 2 TIME FOR 1 DAY
     Dates: start: 20210118
  37. VIREAD [Concomitant]
     Active Substance: TENOFOVIR DISOPROXIL FUMARATE
     Indication: Product used for unknown indication
     Dosage: UNK, SINGLE
     Dates: start: 20201222
  38. VIREAD [Concomitant]
     Active Substance: TENOFOVIR DISOPROXIL FUMARATE
     Dosage: UNK, SINGLE
     Dates: start: 20210118
  39. K CAB [Concomitant]
     Indication: Product used for unknown indication
     Dosage: UNK, SINGLE
     Dates: start: 20201222
  40. K CAB [Concomitant]
     Dosage: UNK, SINGLE
     Dates: start: 20210118
  41. FENTANYL [Concomitant]
     Active Substance: FENTANYL\FENTANYL CITRATE
     Indication: Product used for unknown indication
     Dosage: 100 UG, SINGLE
     Dates: start: 20201222
  42. FENTANYL [Concomitant]
     Active Substance: FENTANYL\FENTANYL CITRATE
     Dosage: 25 UG, SINGLE
     Dates: start: 20201222
  43. FENTANYL [Concomitant]
     Active Substance: FENTANYL\FENTANYL CITRATE
     Dosage: 12 UG, SINGLE
     Dates: start: 20201222
  44. FENTANYL [Concomitant]
     Active Substance: FENTANYL\FENTANYL CITRATE
     Dosage: 100 UG, SINGLE
     Dates: start: 20210118
  45. FENTANYL [Concomitant]
     Active Substance: FENTANYL\FENTANYL CITRATE
     Dosage: 12 UG, SINGLE
     Dates: start: 20210118
  46. FENTANYL [Concomitant]
     Active Substance: FENTANYL\FENTANYL CITRATE
     Dosage: 25 UG, SINGLE
     Dates: start: 20210118
  47. DUPHALAC [Concomitant]
     Active Substance: LACTULOSE
     Indication: Product used for unknown indication
     Dosage: (3 TIMES FOR 1 DAY)
     Dates: start: 20201222
  48. DUPHALAC [Concomitant]
     Active Substance: LACTULOSE
     Dosage: (3 TIMES FOR 1 DAY)
     Dates: start: 20210118
  49. ALPRAZOLAM [Concomitant]
     Active Substance: ALPRAZOLAM
     Indication: Product used for unknown indication
     Dosage: UNK, SINGLE
     Dates: start: 20210118
  50. BETHANECHOL CHLORIDE [Concomitant]
     Active Substance: BETHANECHOL CHLORIDE
     Indication: Product used for unknown indication
     Dosage: UNK (3 TIMES FOR 1 DAY)
     Dates: start: 20210118
  51. VESICARE [Concomitant]
     Active Substance: SOLIFENACIN SUCCINATE
     Indication: Product used for unknown indication
     Dosage: UNK, SINGLE
     Dates: start: 20210118

REACTIONS (2)
  - Death [Fatal]
  - Inappropriate schedule of product administration [Unknown]

NARRATIVE: CASE EVENT DATE: 20210118
